FAERS Safety Report 8898069 (Version 1)
Quarter: 2012Q4

REPORT INFORMATION
  Report Type: 
  Country: US (occurrence: US)
  Receive Date: 20121108
  Receipt Date: 20121108
  Transmission Date: 20130627
  Serious: No
  Sender: FDA-Public Use
  Company Number: US-AMGEN-USASP2012030646

PATIENT
  Age: 63 Year
  Sex: Female
  Weight: 68.03 kg

DRUGS (11)
  1. ENBREL [Suspect]
     Indication: RHEUMATOID ARTHRITIS
     Dosage: 25 mg, qwk
     Route: 058
     Dates: start: 1998
  2. CALCIUM MAGNESIUM [Concomitant]
     Dosage: UNK
  3. AMITRIPTYLIN [Concomitant]
     Dosage: 10 mg, UNK
  4. PREDNISONE [Concomitant]
     Dosage: 1 mg, UNK
  5. METHOTREXATE [Concomitant]
     Dosage: 25 mg, UNK
  6. CINNAMON                           /01647501/ [Concomitant]
     Dosage: 500 mg, UNK
  7. GLUCOSAMINE [Concomitant]
     Dosage: UNK
  8. VITAMIN C                          /00008001/ [Concomitant]
     Dosage: 500 mg, UNK
  9. VITAMIN E                          /00110501/ [Concomitant]
     Dosage: unk
  10. FOLIC ACID [Concomitant]
     Dosage: 1 mg, UNK
  11. DOXYCYCLINE HYCLATE [Concomitant]
     Dosage: 100 mg, UNK

REACTIONS (3)
  - Hand deformity [Unknown]
  - Pain [Unknown]
  - Mycobacterium tuberculosis complex test positive [Unknown]
